FAERS Safety Report 4972980-7 (Version None)
Quarter: 2006Q2

REPORT INFORMATION
  Report Type: 
  Country: None (occurrence: None)
  Receive Date: 20060414
  Receipt Date: 20060411
  Transmission Date: 20061013
  Serious: Yes (Hospitalization)
  Sender: FDA-Public Use
  Company Number: US-GLAXOSMITHKLINE-A0601399A

PATIENT
  Age: 53 Year
  Sex: Male

DRUGS (8)
  1. ARIXTRA [Suspect]
     Indication: DRUG USE FOR UNKNOWN INDICATION
     Dosage: 7.5MG PER DAY
     Route: 058
     Dates: start: 20060410
  2. VANCOMYCIN [Concomitant]
  3. CEFEPIME [Concomitant]
  4. ATIVAN [Concomitant]
  5. THIAMIN [Concomitant]
  6. FOLIC ACID [Concomitant]
  7. TYLENOL (CAPLET) [Concomitant]
  8. TIGAN [Concomitant]

REACTIONS (1)
  - DRUG ADMINISTRATION ERROR [None]
